FAERS Safety Report 9568200 (Version 1)
Quarter: 2013Q3

REPORT INFORMATION
  Report Type: Spontaneous
  Country: US (occurrence: US)
  Receive Date: 20130930
  Receipt Date: 20130930
  Transmission Date: 20140515
  Serious: No
  Sender: FDA-Public Use
  Company Number: US-AMGEN-USASP2013054223

PATIENT
  Age: 53 Year
  Sex: Male
  Weight: 104.31 kg

DRUGS (5)
  1. ENBREL [Suspect]
     Indication: PRODUCT USED FOR UNKNOWN INDICATION
     Dosage: 50 MG, 2 TIMES/WK
     Route: 058
  2. ZOCOR [Concomitant]
     Dosage: 5 MG, UNK
  3. METHADONE [Concomitant]
     Dosage: 10 MG, UNK
  4. ACCUPRIL [Concomitant]
     Dosage: 5 MG, UNK
  5. PERCOCET                           /00867901/ [Concomitant]
     Dosage: 2.5-325, UNK UNK

REACTIONS (2)
  - Injection site haemorrhage [Unknown]
  - Injection site pain [Unknown]
